FAERS Safety Report 14172485 (Version 1)
Quarter: 2017Q4

REPORT INFORMATION
  Report Type: Spontaneous
  Country: US (occurrence: US)
  Receive Date: 20171108
  Receipt Date: 20171108
  Transmission Date: 20180321
  Serious: Yes (Life-Threatening, Hospitalization, Other)
  Sender: FDA-Public Use
  Company Number: None

PATIENT
  Age: 81 Year
  Sex: Male
  Weight: 119 kg

DRUGS (2)
  1. DAPTOMYCIN. [Suspect]
     Active Substance: DAPTOMYCIN
     Indication: ARTHRITIS INFECTIVE
     Route: 040
     Dates: start: 20171104, end: 20171104
  2. DAPTOMYCIN. [Suspect]
     Active Substance: DAPTOMYCIN
     Indication: OSTEOMYELITIS
     Route: 040
     Dates: start: 20171104, end: 20171104

REACTIONS (5)
  - Tachycardia [None]
  - Tachypnoea [None]
  - Oxygen saturation decreased [None]
  - Blood pressure increased [None]
  - Chills [None]

NARRATIVE: CASE EVENT DATE: 20171104
